FAERS Safety Report 9217673 (Version 1)
Quarter: 2013Q2

REPORT INFORMATION
  Report Type: Spontaneous
  Country: US (occurrence: US)
  Receive Date: 20130408
  Receipt Date: 20130408
  Transmission Date: 20140414
  Serious: No
  Sender: FDA-Public Use
  Company Number: US-009507513-1304USA001917

PATIENT
  Sex: Female

DRUGS (1)
  1. CARBIDOPA (+) LEVODOPA [Suspect]
     Indication: PARKINSON^S DISEASE
     Dosage: 10 MG/100 MG
     Route: 048

REACTIONS (3)
  - Nausea [Unknown]
  - Asthenia [Unknown]
  - Drug ineffective [Unknown]
